FAERS Safety Report 12796309 (Version 7)
Quarter: 2018Q3

REPORT INFORMATION
  Report Type: Report from Study
  Country: US (occurrence: US)
  Receive Date: 20160929
  Receipt Date: 20180827
  Transmission Date: 20181010
  Serious: Yes (Other)
  Sender: FDA-Public Use
  Company Number: US-INCYTE CORPORATION-2015IN006712

PATIENT

DRUGS (34)
  1. JAKAFI [Suspect]
     Active Substance: RUXOLITINIB
     Indication: POLYCYTHAEMIA VERA
     Dosage: 10 MG, BID
     Route: 048
     Dates: start: 20150618, end: 20151203
  2. JAKAFI [Suspect]
     Active Substance: RUXOLITINIB
     Dosage: 10 MG, BID 6 DAYS PER WEEK
     Route: 065
     Dates: start: 20170105, end: 20170308
  3. TENORMIN [Concomitant]
     Active Substance: ATENOLOL
     Indication: CHEST PAIN
  4. SYNTHROID [Concomitant]
     Active Substance: LEVOTHYROXINE SODIUM
     Indication: HYPOTHYROIDISM
     Dosage: 25 MCG, QD
     Route: 065
     Dates: start: 20160310
  5. COUMADIN [Concomitant]
     Active Substance: WARFARIN SODIUM
     Indication: ANTICOAGULANT THERAPY
     Dosage: 3 MG, QD
     Route: 065
     Dates: start: 20170321, end: 20170525
  6. JAKAFI [Suspect]
     Active Substance: RUXOLITINIB
     Dosage: 10 MG, QD
     Route: 048
     Dates: start: 20160701, end: 20160908
  7. ATENOLOL. [Concomitant]
     Active Substance: ATENOLOL
     Indication: HYPERTENSION
     Dosage: 50 MG, QD
     Route: 065
     Dates: start: 20150319
  8. ATENOLOL. [Concomitant]
     Active Substance: ATENOLOL
     Indication: CHEST PAIN
  9. JAKAFI [Suspect]
     Active Substance: RUXOLITINIB
     Dosage: 10 MG BID FIVE DAYS A WEEK
     Route: 048
     Dates: start: 20160701, end: 20160908
  10. JAKAFI [Suspect]
     Active Substance: RUXOLITINIB
     Dosage: 5 MG BID ON (MWF)
     Route: 048
     Dates: start: 20160311, end: 20160602
  11. HYDREA [Concomitant]
     Active Substance: HYDROXYUREA
     Dosage: 500 MG, QD
     Route: 065
     Dates: start: 20160407, end: 20160420
  12. ASA [Concomitant]
     Active Substance: ASPIRIN
     Indication: POLYCYTHAEMIA VERA
     Dosage: 81 MG, QD
     Route: 065
     Dates: start: 20131216, end: 20160106
  13. HYDREA [Concomitant]
     Active Substance: HYDROXYUREA
     Dosage: 500 MG, 6 DAYS PER WEEK
     Route: 065
     Dates: start: 20150418, end: 20150617
  14. LIPITOR [Concomitant]
     Active Substance: ATORVASTATIN CALCIUM
     Indication: HYPERLIPIDAEMIA
     Dosage: 20 MG, 3?4 TIMES WEEKLY
     Route: 065
     Dates: start: 20130617
  15. POTASSIUM CHLORIDE. [Concomitant]
     Active Substance: POTASSIUM CHLORIDE
     Indication: BLOOD POTASSIUM DECREASED
     Dosage: 10 MEQ, QD
     Route: 065
     Dates: start: 20131216
  16. ASA [Concomitant]
     Active Substance: ASPIRIN
     Dosage: 81 MG
     Route: 065
     Dates: start: 20170326
  17. TIMOPTIC [Concomitant]
     Active Substance: TIMOLOL MALEATE
     Indication: GLAUCOMA
     Dosage: 1 DROP, QD
     Route: 065
     Dates: start: 20130617, end: 20170318
  18. ULTRAM [Concomitant]
     Active Substance: TRAMADOL HYDROCHLORIDE
     Indication: PAIN
     Dosage: 50 MG, BID
     Route: 065
     Dates: start: 20170404
  19. LATANOPROST. [Concomitant]
     Active Substance: LATANOPROST
     Indication: GLAUCOMA
     Dosage: 1 DROP, QD
     Route: 065
     Dates: start: 20170309
  20. JAKAFI [Suspect]
     Active Substance: RUXOLITINIB
     Dosage: 5 MG DAILY (TUESDAY, THURSDAY, SATURDAY AND SUNDAY)
     Route: 048
     Dates: start: 20160311, end: 20160602
  21. JAKAFI [Suspect]
     Active Substance: RUXOLITINIB
     Dosage: 10 MG QD
     Route: 048
     Dates: start: 20160106, end: 20160218
  22. BENICAR [Concomitant]
     Active Substance: OLMESARTAN MEDOXOMIL
     Indication: HYPERTENSION
     Dosage: 40/25 MG, QD
     Route: 065
     Dates: start: 20131028, end: 20170308
  23. HYDREA [Concomitant]
     Active Substance: HYDROXYUREA
     Indication: POLYCYTHAEMIA VERA
     Dosage: 500 MG, QOD
     Route: 065
     Dates: start: 20150216, end: 20150417
  24. TENORMIN [Concomitant]
     Active Substance: ATENOLOL
     Indication: HYPERTENSION
     Dosage: 25 MG, QD
     Route: 065
     Dates: start: 20130617, end: 20150318
  25. HYZAAR [Concomitant]
     Active Substance: HYDROCHLOROTHIAZIDE\LOSARTAN POTASSIUM
     Indication: HYPERTENSION
     Dosage: 100?25 MG, QD
     Route: 065
     Dates: start: 20170308
  26. JAKAFI [Suspect]
     Active Substance: RUXOLITINIB
     Dosage: 10 MG, QD
     Route: 048
     Dates: start: 20151204, end: 20160310
  27. COUMADIN [Concomitant]
     Active Substance: WARFARIN SODIUM
     Dosage: 5 MG, 5 DAYS A WEEK
     Route: 065
     Dates: start: 20170525
  28. JAKAFI [Suspect]
     Active Substance: RUXOLITINIB
     Dosage: 10 MG TABLETS (500 MG, (TUES, THURS, SAT, SUN) AND 500 MG BID (MON, WED, FRI)
     Route: 048
     Dates: start: 20160311, end: 20160602
  29. JAKAFI [Suspect]
     Active Substance: RUXOLITINIB
     Dosage: 10 TABLET MG, QD AND 10 MG 4X WEEK)
     Route: 048
     Dates: start: 20160603, end: 20160630
  30. JAKAFI [Suspect]
     Active Substance: RUXOLITINIB
     Dosage: 10 MG BID (THREE DAYS A WEEK MWF)
     Route: 048
     Dates: start: 20160219, end: 20160310
  31. JAKAFI [Suspect]
     Active Substance: RUXOLITINIB
     Dosage: 10 MG BID
     Route: 048
     Dates: start: 20170526
  32. JAKAFI [Suspect]
     Active Substance: RUXOLITINIB
     Dosage: 10 MG, QD
     Route: 048
  33. ASA [Concomitant]
     Active Substance: ASPIRIN
     Dosage: 325 MG  QD
     Route: 065
     Dates: start: 20160107, end: 20170325
  34. COUMADIN [Concomitant]
     Active Substance: WARFARIN SODIUM
     Dosage: 7.5 MG, 2 TIMES PER WEEEK
     Route: 065
     Dates: start: 20170525

REACTIONS (18)
  - Dizziness [Recovered/Resolved]
  - May-Thurner syndrome [Recovered/Resolved]
  - Haematocrit increased [Recovered/Resolved]
  - Constipation [Recovered/Resolved]
  - Dyspnoea exertional [Not Recovered/Not Resolved]
  - Cough [Recovered/Resolved]
  - Tooth infection [Recovered/Resolved]
  - Oedema peripheral [Recovered/Resolved]
  - Nausea [Recovered/Resolved]
  - Nausea [Recovered/Resolved]
  - Anaemia [Recovered/Resolved]
  - Alopecia [Recovered/Resolved]
  - Headache [Recovered/Resolved]
  - Haematocrit increased [Recovered/Resolved]
  - Nausea [Recovered/Resolved]
  - Cough [Recovered/Resolved]
  - Influenza [Recovered/Resolved]
  - Haematocrit increased [Recovered/Resolved]

NARRATIVE: CASE EVENT DATE: 20151130
